FAERS Safety Report 10436451 (Version 5)
Quarter: 2014Q4

REPORT INFORMATION
  Report Type: Report from Study
  Country: JP (occurrence: JP)
  Receive Date: 20140908
  Receipt Date: 20141202
  Transmission Date: 20150528
  Serious: Yes (Other)
  Sender: FDA-Public Use
  Company Number: JP-PFIZER INC-2014243844

PATIENT
  Age: 55 Year
  Sex: Male
  Weight: 61.7 kg

DRUGS (2)
  1. LOPEMIN [Concomitant]
     Active Substance: LOPERAMIDE HYDROCHLORIDE
     Dosage: 1 MG, AS NEEDED
     Route: 048
     Dates: start: 20130710
  2. XALKORI [Suspect]
     Active Substance: CRIZOTINIB
     Indication: NON-SMALL CELL LUNG CANCER
     Dosage: 250 MG, 2X/DAY
     Route: 048
     Dates: start: 20130619, end: 20131119

REACTIONS (2)
  - Renal abscess [Recovered/Resolved]
  - Muscle abscess [Recovered/Resolved]

NARRATIVE: CASE EVENT DATE: 20131108
